FAERS Safety Report 4536074-7 (Version None)
Quarter: 2004Q4

REPORT INFORMATION
  Report Type: 
  Country: None (occurrence: None)
  Receive Date: 20041214
  Receipt Date: 20040609
  Transmission Date: 20050328
  Serious: Yes (Other)
  Sender: FDA-Public Use
  Company Number: 2004218053US

PATIENT
  Age: 22 Year
  Sex: Male

DRUGS (1)
  1. XANAX [Suspect]
     Dates: end: 20040606

REACTIONS (3)
  - CONVULSION [None]
  - DRUG ABUSER [None]
  - DRUG WITHDRAWAL SYNDROME [None]
